FAERS Safety Report 12660646 (Version 2)
Quarter: 2016Q3

REPORT INFORMATION
  Report Type: Spontaneous
  Country: US (occurrence: US)
  Receive Date: 20160817
  Receipt Date: 20160901
  Transmission Date: 20161109
  Serious: No
  Sender: FDA-Public Use
  Company Number: US-RELYPSA-RLY2016001012

PATIENT
  Sex: Female

DRUGS (9)
  1. SLEEP AID                          /00000402/ [Concomitant]
     Active Substance: DIPHENHYDRAMINE HYDROCHLORIDE
  2. TOPROL XL [Concomitant]
     Active Substance: METOPROLOL SUCCINATE
  3. KRILL OIL [Concomitant]
     Active Substance: DIETARY SUPPLEMENT
  4. VELTASSA [Suspect]
     Active Substance: PATIROMER
     Indication: HYPERKALAEMIA
     Dosage: 8.4 G, QD
     Route: 048
  5. XARELTO [Concomitant]
     Active Substance: RIVAROXABAN
  6. IRON [Concomitant]
     Active Substance: IRON
  7. LASIX [Concomitant]
     Active Substance: FUROSEMIDE
  8. CALCIUM 500+D [Concomitant]
     Active Substance: CALCIUM\VITAMIN D
  9. VITAMINS WITH MINERALS [Concomitant]
     Active Substance: MINERALS\VITAMINS

REACTIONS (1)
  - Constipation [Unknown]
